FAERS Safety Report 9197734 (Version 5)
Quarter: 2013Q3

REPORT INFORMATION
  Report Type: Report from Study
  Country: DK (occurrence: DK)
  Receive Date: 20130328
  Receipt Date: 20130703
  Transmission Date: 20140515
  Serious: Yes (Hospitalization)
  Sender: FDA-Public Use
  Company Number: DK-PFIZER INC-2011045950

PATIENT
  Age: 46 Year
  Sex: Male
  Weight: 90 kg

DRUGS (6)
  1. PANTOPRAZOLE [Suspect]
     Indication: GASTRITIS
     Dosage: 40 MG, 1X/DAY
     Route: 065
     Dates: start: 20101018
  2. NILOTINIB [Suspect]
     Indication: CHRONIC MYELOID LEUKAEMIA
     Dosage: 300 MG, 2X/DAY
     Route: 048
     Dates: start: 20080728, end: 20110110
  3. NILOTINIB [Suspect]
     Indication: OESOPHAGITIS
     Dosage: 300 MG, 2X/DAY
     Route: 048
     Dates: start: 20110112, end: 20110117
  4. METFORMIN [Concomitant]
     Dosage: UNK
     Dates: start: 20091001
  5. KININ [Concomitant]
     Dosage: UNK
  6. QUININE [Concomitant]
     Dosage: UNK

REACTIONS (4)
  - Abdominal pain [Not Recovered/Not Resolved]
  - Constipation [Unknown]
  - Pancreatitis [Recovered/Resolved]
  - Liver disorder [Unknown]
